FAERS Safety Report 8281422-8 (Version None)
Quarter: 2012Q2

REPORT INFORMATION
  Report Type: 
  Country: None (occurrence: None)
  Receive Date: 20120411
  Receipt Date: 20120411
  Transmission Date: 20120825
  Serious: Yes (Other)
  Sender: FDA-Public Use
  Company Number: None

PATIENT
  Sex: Female
  Weight: 62.3 kg

DRUGS (1)
  1. INCIVEK [Suspect]
     Dosage: 750 MG TID PO
     Route: 048
     Dates: start: 20120201, end: 20120402

REACTIONS (5)
  - FACE OEDEMA [None]
  - RASH PRURITIC [None]
  - SCRATCH [None]
  - SKIN ULCER [None]
  - RASH GENERALISED [None]
